FAERS Safety Report 22208330 (Version 1)
Quarter: 2023Q2

REPORT INFORMATION
  Report Type: Report from Study
  Country: US (occurrence: US)
  Receive Date: 20230413
  Receipt Date: 20230413
  Transmission Date: 20230722
  Serious: Yes (Other)
  Sender: FDA-Public Use
  Company Number: US-MYLANLABS-2023M1038209

PATIENT

DRUGS (1)
  1. TEMOZOLOMIDE [Suspect]
     Active Substance: TEMOZOLOMIDE
     Indication: Neuroendocrine carcinoma metastatic
     Dosage: 150 MILLIGRAM/SQ. METER, QD  (ON DAYS 1-5 OF A 28 DAY CYCLE)
     Route: 048

REACTIONS (3)
  - Sepsis [Unknown]
  - Acute kidney injury [Unknown]
  - Off label use [Unknown]
